FAERS Safety Report 23830257 (Version 1)
Quarter: 2024Q2

REPORT INFORMATION
  Report Type: Spontaneous
  Country: CH (occurrence: CH)
  Receive Date: 20240508
  Receipt Date: 20240508
  Transmission Date: 20240715
  Serious: Yes (Hospitalization)
  Sender: FDA-Public Use
  Company Number: CH-ELI_LILLY_AND_COMPANY-CH202404014080

PATIENT
  Age: 21 Year
  Sex: Male

DRUGS (3)
  1. OLANZAPINE [Suspect]
     Active Substance: OLANZAPINE
     Indication: Suicidal ideation
     Dosage: 105 MG, UNK
     Dates: start: 20240229, end: 20240229
  2. OLANZAPINE [Suspect]
     Active Substance: OLANZAPINE
     Indication: Antipsychotic therapy
     Dosage: 105 MG, UNK
     Dates: start: 20240229, end: 20240229
  3. QUETIAPINE [Suspect]
     Active Substance: QUETIAPINE
     Indication: Suicidal ideation
     Dosage: 275 MG, UNK
     Dates: start: 20240229, end: 20240229

REACTIONS (7)
  - Intentional overdose [Unknown]
  - Hypertension [Unknown]
  - Depressed level of consciousness [Unknown]
  - Tachycardia [Unknown]
  - Agitation [Unknown]
  - Urinary retention [Unknown]
  - Polyuria [Unknown]

NARRATIVE: CASE EVENT DATE: 20240229
